FAERS Safety Report 16795801 (Version 2)
Quarter: 2019Q3

REPORT INFORMATION
  Report Type: Spontaneous
  Country: US (occurrence: US)
  Receive Date: 20190911
  Receipt Date: 20190925
  Transmission Date: 20191005
  Serious: Yes (Hospitalization, Other)
  Sender: FDA-Public Use
  Company Number: US-HIKMA PHARMACEUTICALS USA INC.-US-H14001-19-04816

PATIENT
  Age: 12 Year
  Sex: Male
  Weight: 43 kg

DRUGS (7)
  1. FENTANYL. [Suspect]
     Active Substance: FENTANYL
     Dosage: MAX DOSE 4 MCG/KG/H, POD 0-2
  2. DEXMEDETOMIDINE. [Concomitant]
     Active Substance: DEXMEDETOMIDINE
     Indication: SEDATION
     Dosage: FROM 5 D PREOPERATIVELY-POD 34 AT A MAX DOSE 1.5 MCG/KG/H;
     Route: 065
  3. METHADONE [Suspect]
     Active Substance: METHADONE HYDROCHLORIDE
     Indication: PROCEDURAL PAIN
     Dosage: POD 19-27;
     Route: 042
  4. FENTANYL. [Suspect]
     Active Substance: FENTANYL
     Indication: PROCEDURAL PAIN
     Dosage: BOLUS DOSES 1 MCG/KG/DOSE PER NEED;
     Route: 040
  5. HYDROMORPHONE [Suspect]
     Active Substance: HYDROMORPHONE
     Indication: POSTOPERATIVE ANALGESIA
     Dosage: POD 2-40, MAX DOSE 0.3 MG BASAL;
     Route: 065
  6. HYDROMORPHONE [Suspect]
     Active Substance: HYDROMORPHONE
     Dosage: POD 2-40, 0.35 MG/DOSE PRN; AS NECESSARY
  7. MORPHINE [Suspect]
     Active Substance: MORPHINE
     Indication: PROCEDURAL PAIN
     Dosage: 2 MG/DOSE EVERY TWO HOURS PER NEED;
     Route: 065

REACTIONS (2)
  - Abdominal compartment syndrome [Recovered/Resolved]
  - Postoperative ileus [Recovered/Resolved]
